FAERS Safety Report 7823205-6 (Version None)
Quarter: 2011Q4

REPORT INFORMATION
  Report Type: 
  Country: None (occurrence: None)
  Receive Date: 20111019
  Receipt Date: 20111012
  Transmission Date: 20120403
  Serious: No
  Sender: FDA-Public Use
  Company Number: US-BIOGENIDEC-2011BI039241

PATIENT
  Age: 58 Year
  Sex: Female

DRUGS (3)
  1. TYSABRI [Suspect]
     Indication: MULTIPLE SCLEROSIS
     Route: 042
     Dates: start: 20100112
  2. TYSABRI [Suspect]
     Route: 042
     Dates: start: 20070220, end: 20090609
  3. AMPYRA [Concomitant]
     Indication: PRODUCT USED FOR UNKNOWN INDICATION
     Dates: start: 20110701

REACTIONS (8)
  - FOOT FRACTURE [None]
  - FALL [None]
  - GAIT DISTURBANCE [None]
  - URINARY TRACT INFECTION [None]
  - FATIGUE [None]
  - ASTHENIA [None]
  - MALAISE [None]
  - MULTIPLE SCLEROSIS [None]
